FAERS Safety Report 6000449-X (Version None)
Quarter: 2008Q4

REPORT INFORMATION
  Report Type: 
  Country: None (occurrence: None)
  Receive Date: 20081212
  Receipt Date: 20080602
  Transmission Date: 20090506
  Serious: Yes (Other)
  Sender: FDA-Public Use
  Company Number: 19435

PATIENT
  Age: 56 Year
  Sex: Male
  Weight: 67.586 kg

DRUGS (2)
  1. CARBOPLATIN [Suspect]
     Indication: NON-SMALL CELL LUNG CANCER
     Dates: start: 20080602, end: 20080602
  2. TAXOTERE [Concomitant]

REACTIONS (4)
  - HYPERSENSITIVITY [None]
  - NAUSEA [None]
  - RETCHING [None]
  - SENSATION OF FOREIGN BODY [None]
